FAERS Safety Report 12755257 (Version 2)
Quarter: 2016Q3

REPORT INFORMATION
  Report Type: Report from Study
  Country: BR (occurrence: BR)
  Receive Date: 20160916
  Receipt Date: 20160920
  Transmission Date: 20161109
  Serious: Yes (Death, Hospitalization, Other)
  Sender: FDA-Public Use
  Company Number: PHHY2016BR127501

PATIENT
  Age: 89 Year
  Sex: Male
  Weight: 72 kg

DRUGS (3)
  1. EXELON PATCH [Suspect]
     Active Substance: RIVASTIGMINE
     Indication: DEMENTIA ALZHEIMER^S TYPE
     Dosage: 4.6 MG QD, PATCH 5 (CM2)
     Route: 062
  2. EXELON PATCH [Suspect]
     Active Substance: RIVASTIGMINE
     Dosage: 9.5 MG QD, PATCH 10 (CM2)
     Route: 062
     Dates: start: 201106
  3. RISPERIDONE. [Concomitant]
     Active Substance: RISPERIDONE
     Indication: DEMENTIA ALZHEIMER^S TYPE
     Dosage: 1 DF, QD (STARTED 4 YEARS AND A HALF AGO)
     Route: 048

REACTIONS (8)
  - Haematocrit decreased [Fatal]
  - Asthenia [Fatal]
  - Hypotension [Fatal]
  - Chronic kidney disease [Unknown]
  - Sepsis [Fatal]
  - Nosocomial infection [Fatal]
  - Pneumonia [Fatal]
  - Anaemia [Unknown]

NARRATIVE: CASE EVENT DATE: 201606
